FAERS Safety Report 4439118-6 (Version None)
Quarter: 2004Q3

REPORT INFORMATION
  Report Type: 
  Country: None (occurrence: None)
  Receive Date: 20040831
  Receipt Date: 20040816
  Transmission Date: 20050211
  Serious: No
  Sender: FDA-Public Use
  Company Number: 2004-00334FE

PATIENT
  Age: 70 Year
  Sex: Male

DRUGS (2)
  1. PENTASA [Suspect]
     Indication: CROHN'S DISEASE
     Dosage: ORALLY
     Route: 048
  2. URSODEOXYCHOLIC ACID [Concomitant]

REACTIONS (4)
  - COMPLEMENT FACTOR DECREASED [None]
  - CRYPTOGENIC ORGANIZING PNEUMONIA [None]
  - DNA ANTIBODY POSITIVE [None]
  - SYSTEMIC LUPUS ERYTHEMATOSUS [None]
